FAERS Safety Report 13913079 (Version 1)
Quarter: 2017Q3

REPORT INFORMATION
  Report Type: Spontaneous
  Country: US (occurrence: US)
  Receive Date: 20170828
  Receipt Date: 20170828
  Transmission Date: 20171127
  Serious: No
  Sender: FDA-Public Use
  Company Number: US-ROCHE-1123929

PATIENT
  Sex: Male

DRUGS (2)
  1. NUTROPIN [Suspect]
     Active Substance: SOMATROPIN
     Indication: TURNER^S SYNDROME
     Route: 065
  2. NUTROPIN [Suspect]
     Active Substance: SOMATROPIN
     Dosage: DOSE REDUCED
     Route: 065

REACTIONS (1)
  - Acromegaly [Unknown]
